FAERS Safety Report 26156488 (Version 1)
Quarter: 2025Q4

REPORT INFORMATION
  Report Type: Spontaneous
  Country: CN (occurrence: CN)
  Receive Date: 20251215
  Receipt Date: 20251215
  Transmission Date: 20260118
  Serious: Yes (Life-Threatening, Hospitalization)
  Sender: STRIDES
  Company Number: None

PATIENT
  Age: 31 Year
  Sex: Male

DRUGS (7)
  1. LEVETIRACETAM [Interacting]
     Active Substance: LEVETIRACETAM
     Indication: Seizure
     Dosage: 125 MILLIGRAM, QD
     Route: 065
  2. LEVETIRACETAM [Interacting]
     Active Substance: LEVETIRACETAM
     Dosage: 250 MILLIGRAM, EVERY 12 HRS
     Route: 065
  3. VALPROATE SODIUM [Interacting]
     Active Substance: VALPROATE SODIUM
     Indication: Seizure
     Dosage: 500 MILLIGRAM, EVERY 8 HRS
     Route: 065
  4. CLONAZEPAM [Concomitant]
     Active Substance: CLONAZEPAM
     Indication: Psychiatric symptom
     Dosage: 0.5 MILLIGRAM, EVERY 8 HRS
     Route: 065
  5. CLONAZEPAM [Concomitant]
     Active Substance: CLONAZEPAM
     Dosage: 1 MILLIGRAM, EVERY 8 HOURS
     Route: 065
  6. ARIPIPRAZOLE [Concomitant]
     Active Substance: ARIPIPRAZOLE
     Indication: Psychiatric symptom
     Dosage: 2.5 MILLIGRAM, QD
     Route: 065
  7. ARIPIPRAZOLE [Concomitant]
     Active Substance: ARIPIPRAZOLE
     Dosage: 5 MILLIGRAM, QD
     Route: 065

REACTIONS (3)
  - Thrombocytopenia [Recovered/Resolved]
  - Potentiating drug interaction [Recovered/Resolved]
  - Anticonvulsant drug level increased [Unknown]
